FAERS Safety Report 24228052 (Version 3)
Quarter: 2024Q4

REPORT INFORMATION
  Report Type: Report from Study
  Country: US (occurrence: US)
  Receive Date: 20240820
  Receipt Date: 20241204
  Transmission Date: 20250115
  Serious: Yes (Hospitalization, Other)
  Sender: SUNOVION
  Company Number: US-SUMITOMO PHARMA SWITZERLAND GMBH-2024SPA000996

PATIENT

DRUGS (2)
  1. ORGOVYX [Suspect]
     Active Substance: RELUGOLIX
     Indication: Prostate cancer
     Dosage: UNK
     Route: 048
  2. ORGOVYX [Suspect]
     Active Substance: RELUGOLIX
     Dosage: 120 MG, QD
     Route: 048
     Dates: start: 20240502

REACTIONS (8)
  - Cancer surgery [Unknown]
  - Atrial fibrillation [Unknown]
  - Emotional disorder [Unknown]
  - Blood magnesium decreased [Unknown]
  - Pollakiuria [Unknown]
  - Dysuria [Unknown]
  - Abdominal discomfort [Unknown]
  - Diarrhoea [Unknown]
